FAERS Safety Report 5752818-0 (Version None)
Quarter: 2008Q2

REPORT INFORMATION
  Report Type: 
  Country: None (occurrence: None)
  Receive Date: 20080527
  Receipt Date: 20080527
  Transmission Date: 20081010
  Serious: No
  Sender: FDA-Public Use
  Company Number: None

PATIENT
  Age: 52 Year
  Sex: Female
  Weight: 106.5953 kg

DRUGS (2)
  1. ACYCLOVIR [Suspect]
     Indication: DISEASE RECURRENCE
     Dosage: 400MG DAILY PO
     Route: 048
     Dates: start: 20070807, end: 20080523
  2. ACYCLOVIR [Suspect]
     Indication: HERPES SIMPLEX
     Dosage: 400MG DAILY PO
     Route: 048
     Dates: start: 20070807, end: 20080523

REACTIONS (6)
  - DIZZINESS [None]
  - FATIGUE [None]
  - HEADACHE [None]
  - PAIN IN EXTREMITY [None]
  - PYREXIA [None]
  - SINUSITIS [None]
